FAERS Safety Report 7562245-1 (Version None)
Quarter: 2011Q2

REPORT INFORMATION
  Report Type: 
  Country: None (occurrence: None)
  Receive Date: 20110622
  Receipt Date: 20110610
  Transmission Date: 20111010
  Serious: Yes (Hospitalization)
  Sender: FDA-Public Use
  Company Number: PL-JNJFOC-20110507720

PATIENT
  Sex: Male
  Weight: 94 kg

DRUGS (10)
  1. GOLIMUMAB [Suspect]
     Route: 058
     Dates: start: 20060718
  2. METHOTREXATE [Suspect]
     Indication: RHEUMATOID ARTHRITIS
     Route: 048
     Dates: start: 20060622, end: 20070710
  3. GOLIMUMAB [Suspect]
     Indication: RHEUMATOID ARTHRITIS
     Route: 058
     Dates: start: 20110419
  4. GOLIMUMAB [Suspect]
     Route: 058
     Dates: start: 20070619
  5. IPRATROPIUM BROMIDE [Concomitant]
     Route: 055
     Dates: start: 20100414
  6. FOLIC ACID [Concomitant]
     Route: 048
     Dates: start: 20060622
  7. SALMETEROL [Concomitant]
     Indication: RHEUMATOID ARTHRITIS
     Route: 048
     Dates: start: 20050101
  8. TORASEMIDUM [Concomitant]
     Route: 048
     Dates: start: 20100423
  9. GOLIMUMAB [Suspect]
     Route: 058
  10. METHOTREXATE [Concomitant]
     Route: 048
     Dates: start: 20080617

REACTIONS (2)
  - LUNG ADENOCARCINOMA [None]
  - TUBERCULOSIS [None]
